FAERS Safety Report 9949702 (Version 1)
Quarter: 2014Q1

REPORT INFORMATION
  Report Type: Report from Study
  Country: US (occurrence: US)
  Receive Date: 20140304
  Receipt Date: 20140304
  Transmission Date: 20141002
  Serious: No
  Sender: FDA-Public Use
  Company Number: US-ABBVIE-13P-163-1070195-00

PATIENT
  Age: 34 Year
  Sex: Male
  Weight: 79.45 kg

DRUGS (6)
  1. HUMIRA [Suspect]
     Indication: GUTTATE PSORIASIS
     Dates: start: 201210, end: 201210
  2. HUMIRA [Suspect]
     Dates: end: 201211
  3. DOVENEX [Concomitant]
     Indication: GUTTATE PSORIASIS
  4. CLOBETASOL [Concomitant]
     Indication: GUTTATE PSORIASIS
  5. CLOBETASOL [Concomitant]
     Indication: GUTTATE PSORIASIS
     Dosage: FOAM
  6. PROTOPIC [Concomitant]
     Indication: GUTTATE PSORIASIS

REACTIONS (4)
  - Off label use [Recovered/Resolved]
  - Dyspnoea exertional [Recovered/Resolved]
  - Cough [Recovered/Resolved]
  - Upper respiratory tract infection [Recovered/Resolved]
